FAERS Safety Report 8078775-2 (Version None)
Quarter: 2012Q1

REPORT INFORMATION
  Report Type: 
  Country: None (occurrence: None)
  Receive Date: 20120124
  Receipt Date: 20120110
  Transmission Date: 20120608
  Serious: Yes (Death)
  Sender: FDA-Public Use
  Company Number: 1000027256

PATIENT
  Age: 71 Year
  Sex: Female

DRUGS (6)
  1. NABUMETONE [Suspect]
     Dosage: ORAL
     Route: 048
  2. DIPHENHYDRAMINE HCL [Suspect]
     Dosage: ORAL
     Route: 048
  3. CITALOPRAM HYDROBROMIDE [Suspect]
     Dosage: ORAL
     Route: 048
  4. IBUPROFEN [Suspect]
     Dosage: ORAL
     Route: 048
  5. BACLOFEN [Suspect]
     Dosage: ORAL
     Route: 048
  6. LISINOPRIL [Suspect]
     Dosage: ORAL
     Route: 048

REACTIONS (1)
  - COMPLETED SUICIDE [None]
